FAERS Safety Report 8506198-8 (Version None)
Quarter: 2012Q3

REPORT INFORMATION
  Report Type: 
  Country: None (occurrence: None)
  Receive Date: 20120712
  Receipt Date: 20120709
  Transmission Date: 20120928
  Serious: Yes (Hospitalization)
  Sender: FDA-Public Use
  Company Number: US-ROCHE-1085862

PATIENT
  Sex: Female
  Weight: 77.2 kg

DRUGS (8)
  1. DEXAMETHASONE [Concomitant]
  2. LOVENOX [Concomitant]
  3. MIRALAX [Concomitant]
  4. COLACE [Concomitant]
  5. BLINDED EVEROLIMUS [Suspect]
     Indication: MALIGNANT PERITONEAL NEOPLASM
     Dosage: LASAT ADMINISTERED DATE : 03/JUL/2012
     Dates: start: 20120521, end: 20120709
  6. AVASTIN [Suspect]
     Indication: MALIGNANT PERITONEAL NEOPLASM
     Dosage: LAST ADMINISTERED DATE 18/JUN/2012
     Route: 042
     Dates: start: 20120521, end: 20120709
  7. COMPAZINE [Concomitant]
  8. ZOFRAN [Concomitant]

REACTIONS (3)
  - HEADACHE [None]
  - HAEMORRHAGE INTRACRANIAL [None]
  - MEMORY IMPAIRMENT [None]
